FAERS Safety Report 23576809 (Version 1)
Quarter: 2024Q1

REPORT INFORMATION
  Report Type: Spontaneous
  Country: CN (occurrence: None)
  Receive Date: 20240228
  Receipt Date: 20240228
  Transmission Date: 20240410
  Serious: Yes (Hospitalization, Disabling)
  Sender: FDA-Public Use
  Company Number: CN-ROCHE-3515817

PATIENT
  Age: 64 Year
  Sex: Male
  Weight: 67 kg

DRUGS (2)
  1. AVASTIN [Suspect]
     Active Substance: BEVACIZUMAB
     Indication: Lung neoplasm malignant
     Route: 041
     Dates: start: 20231211, end: 20231211
  2. SINTILIMAB [Suspect]
     Active Substance: SINTILIMAB
     Indication: Immunosuppression
     Route: 041
     Dates: start: 20231211, end: 20231211

REACTIONS (3)
  - Hepatic function abnormal [Recovering/Resolving]
  - Transaminases increased [Recovering/Resolving]
  - Off label use [Unknown]

NARRATIVE: CASE EVENT DATE: 20240103
